FAERS Safety Report 14373001 (Version 1)
Quarter: 2018Q1

REPORT INFORMATION
  Report Type: Spontaneous
  Country: US (occurrence: US)
  Receive Date: 20180110
  Receipt Date: 20180110
  Transmission Date: 20180509
  Serious: Yes (Death)
  Sender: FDA-Public Use
  Company Number: US-ACTELION-A-US2018-165276

PATIENT
  Age: 84 Year
  Sex: Female

DRUGS (12)
  1. SOMA [Concomitant]
     Active Substance: CARISOPRODOL
  2. ADCIRCA [Concomitant]
     Active Substance: TADALAFIL
  3. PROTONIX [Concomitant]
     Active Substance: PANTOPRAZOLE SODIUM
  4. SPIRIVA [Concomitant]
     Active Substance: TIOTROPIUM BROMIDE MONOHYDRATE
  5. LATANOPROST. [Concomitant]
     Active Substance: LATANOPROST
  6. TRACLEER [Suspect]
     Active Substance: BOSENTAN
     Indication: PULMONARY ARTERIAL HYPERTENSION
     Dosage: 125 MG, UNK
     Route: 048
     Dates: start: 20150806
  7. CRESTOR [Concomitant]
     Active Substance: ROSUVASTATIN CALCIUM
  8. LEVOTHYROXINE. [Concomitant]
     Active Substance: LEVOTHYROXINE
  9. METOLAZONE. [Concomitant]
     Active Substance: METOLAZONE
  10. ALDACTONE [Concomitant]
     Active Substance: SPIRONOLACTONE
  11. WARFARIN [Concomitant]
     Active Substance: WARFARIN
  12. COREG [Concomitant]
     Active Substance: CARVEDILOL

REACTIONS (2)
  - Disease complication [Fatal]
  - Pulmonary arterial hypertension [Fatal]
